FAERS Safety Report 18025438 (Version 1)
Quarter: 2020Q3

REPORT INFORMATION
  Report Type: Spontaneous
  Country: AT (occurrence: AT)
  Receive Date: 20200715
  Receipt Date: 20200715
  Transmission Date: 20201103
  Serious: Yes (Other)
  Sender: FDA-Public Use
  Company Number: AT-TEVA-2020-AT-1799842

PATIENT
  Age: 61 Year
  Sex: Female

DRUGS (4)
  1. TARDYFERON [Concomitant]
     Active Substance: FERROUS SULFATE
  2. PROXEN [Concomitant]
  3. AZITHROMYCIN RATIOPHARM [Suspect]
     Active Substance: AZITHROMYCIN
     Dosage: P.O.
     Dates: start: 20200115, end: 20200115
  4. ULCUSAN [Concomitant]

REACTIONS (3)
  - Pruritus [Unknown]
  - Hypoaesthesia oral [Unknown]
  - Type I hypersensitivity [Unknown]
